FAERS Safety Report 8657394 (Version 2)
Quarter: 2012Q4

REPORT INFORMATION
  Report Type: 
  Country: JP (occurrence: JP)
  Receive Date: 20120710
  Receipt Date: 20121119
  Transmission Date: 20130627
  Serious: Yes (Other)
  Sender: FDA-Public Use
  Company Number: JP-MSD-2012SP035023

PATIENT
  Age: 54 Year
  Sex: Female
  Weight: 57 kg

DRUGS (5)
  1. PEGINTRON POWDER FOR INJECTION 150MICROG [Suspect]
     Indication: CHRONIC HEPATITIS C
     Dosage: 1.5 Microgram per kilogram, qw
     Route: 058
     Dates: start: 20120605, end: 20120609
  2. REBETOL [Suspect]
     Indication: CHRONIC HEPATITIS C
     Dosage: 600 mg, QD
     Route: 048
     Dates: start: 20120605, end: 20120609
  3. TELAPREVIR [Suspect]
     Indication: CHRONIC HEPATITIS C
     Dosage: 2250 mg, QD
     Route: 048
     Dates: start: 20120605, end: 20120609
  4. SELBEX [Concomitant]
     Indication: PROPHYLAXIS
     Dosage: UPDATE (27JUN2012); FORMULATION: POR
     Route: 048
     Dates: start: 20120609
  5. BLOPRESS [Concomitant]
     Indication: HYPERTENSION
     Dosage: UPDATE (27JUN2012); FORMULATION: POR
     Route: 048

REACTIONS (2)
  - Erythema [Recovering/Resolving]
  - Rash [Recovering/Resolving]
